FAERS Safety Report 6170571-6 (Version None)
Quarter: 2009Q2

REPORT INFORMATION
  Report Type: 
  Country: None (occurrence: None)
  Receive Date: 20090424
  Receipt Date: 20090116
  Transmission Date: 20091009
  Serious: No
  Sender: FDA-Public Use
  Company Number: ALL1-2009-00128

PATIENT
  Age: 49 Year
  Sex: Female
  Weight: 45.4 kg

DRUGS (2)
  1. VYVANSE [Suspect]
     Indication: ATTENTION DEFICIT/HYPERACTIVITY DISORDER
     Dosage: 30 MG, 1X/DAY:QD, ORAL
     Dates: start: 20081201, end: 20081201
  2. SEROQUEL [Concomitant]

REACTIONS (1)
  - ABDOMINAL DISCOMFORT [None]
